FAERS Safety Report 24983088 (Version 3)
Quarter: 2025Q1

REPORT INFORMATION
  Report Type: Spontaneous
  Country: CA (occurrence: None)
  Receive Date: 20250218
  Receipt Date: 20250219
  Transmission Date: 20250409
  Serious: Yes (Other)
  Sender: ALEXION PHARMACEUTICALS
  Company Number: CA-HALEON-2224455

PATIENT
  Age: 53 Year

DRUGS (452)
  1. NEXIUM [Suspect]
     Active Substance: ESOMEPRAZOLE MAGNESIUM
     Indication: Gastritis
     Route: 065
  2. HYDROCORTISONE [Suspect]
     Active Substance: HYDROCORTISONE
     Indication: Colitis ulcerative
     Route: 065
  3. HYDROCORTISONE [Suspect]
     Active Substance: HYDROCORTISONE
     Route: 065
  4. HYDROCORTISONE [Suspect]
     Active Substance: HYDROCORTISONE
  5. HYDROCORTISONE [Suspect]
     Active Substance: HYDROCORTISONE
  6. HYDROCORTISONE [Suspect]
     Active Substance: HYDROCORTISONE
  7. HYDROCORTISONE [Suspect]
     Active Substance: HYDROCORTISONE
  8. HYDROCORTISONE [Suspect]
     Active Substance: HYDROCORTISONE
  9. HYDROCORTISONE [Suspect]
     Active Substance: HYDROCORTISONE
  10. HYDROCORTISONE [Suspect]
     Active Substance: HYDROCORTISONE
  11. HYDROCORTISONE [Suspect]
     Active Substance: HYDROCORTISONE
  12. HYDROCORTISONE [Suspect]
     Active Substance: HYDROCORTISONE
     Route: 065
  13. VITAMIN D3 [Suspect]
     Active Substance: CHOLECALCIFEROL
     Indication: Product used for unknown indication
     Route: 065
  14. ACETAMINOPHEN [Suspect]
     Active Substance: ACETAMINOPHEN
     Indication: Ill-defined disorder
     Route: 065
  15. ACETAMINOPHEN [Suspect]
     Active Substance: ACETAMINOPHEN
     Route: 065
  16. ACETAMINOPHEN [Suspect]
     Active Substance: ACETAMINOPHEN
     Route: 065
  17. ADALIMUMAB [Suspect]
     Active Substance: ADALIMUMAB
     Indication: Crohn^s disease
  18. ADALIMUMAB [Suspect]
     Active Substance: ADALIMUMAB
     Indication: Colitis ulcerative
  19. ADALIMUMAB [Suspect]
     Active Substance: ADALIMUMAB
     Route: 065
  20. ADALIMUMAB [Suspect]
     Active Substance: ADALIMUMAB
     Route: 065
  21. ADALIMUMAB [Suspect]
     Active Substance: ADALIMUMAB
     Route: 065
  22. ADALIMUMAB [Suspect]
     Active Substance: ADALIMUMAB
     Route: 065
  23. ADALIMUMAB [Suspect]
     Active Substance: ADALIMUMAB
     Route: 065
  24. ADALIMUMAB [Suspect]
     Active Substance: ADALIMUMAB
  25. ADALIMUMAB [Suspect]
     Active Substance: ADALIMUMAB
  26. ADALIMUMAB [Suspect]
     Active Substance: ADALIMUMAB
  27. ADALIMUMAB [Suspect]
     Active Substance: ADALIMUMAB
  28. ADALIMUMAB [Suspect]
     Active Substance: ADALIMUMAB
  29. ADALIMUMAB [Suspect]
     Active Substance: ADALIMUMAB
     Route: 065
  30. ALBENDAZOLE [Suspect]
     Active Substance: ALBENDAZOLE
     Indication: Deep vein thrombosis
  31. ALBENDAZOLE [Suspect]
     Active Substance: ALBENDAZOLE
     Indication: Colitis ulcerative
  32. ALBENDAZOLE [Suspect]
     Active Substance: ALBENDAZOLE
  33. ALBENDAZOLE [Suspect]
     Active Substance: ALBENDAZOLE
  34. ALBENDAZOLE [Suspect]
     Active Substance: ALBENDAZOLE
  35. ALGINIC ACID [Concomitant]
     Active Substance: ALGINIC ACID
     Indication: Product used for unknown indication
     Route: 065
  36. AMLODIPINE BESYLATE [Concomitant]
     Active Substance: AMLODIPINE BESYLATE
     Indication: Product used for unknown indication
     Route: 065
  37. AMLODIPINE BESYLATE [Concomitant]
     Active Substance: AMLODIPINE BESYLATE
     Route: 065
  38. ASPIRIN [Suspect]
     Active Substance: ASPIRIN
     Indication: Product used for unknown indication
     Route: 065
  39. ASPIRIN [Suspect]
     Active Substance: ASPIRIN
     Indication: Ill-defined disorder
     Route: 065
  40. ATORVASTATIN CALCIUM [Concomitant]
     Active Substance: ATORVASTATIN CALCIUM
     Indication: Product used for unknown indication
     Route: 065
  41. ATORVASTATIN CALCIUM [Concomitant]
     Active Substance: ATORVASTATIN CALCIUM
     Route: 065
  42. BETNOVATE [Concomitant]
     Active Substance: BETAMETHASONE
     Indication: Ill-defined disorder
     Route: 065
  43. BISOPROLOL [Concomitant]
     Active Substance: BISOPROLOL
     Indication: Ill-defined disorder
     Route: 065
  44. BISOPROLOL [Concomitant]
     Active Substance: BISOPROLOL
     Indication: Dyscalculia
     Route: 065
  45. BUDESONIDE [Suspect]
     Active Substance: BUDESONIDE
     Indication: Colitis ulcerative
  46. BUDESONIDE [Suspect]
     Active Substance: BUDESONIDE
  47. BUDESONIDE [Suspect]
     Active Substance: BUDESONIDE
     Route: 065
  48. BUDESONIDE [Suspect]
     Active Substance: BUDESONIDE
     Route: 065
  49. BUDESONIDE [Suspect]
     Active Substance: BUDESONIDE
     Route: 065
  50. BUDESONIDE [Suspect]
     Active Substance: BUDESONIDE
  51. BUDESONIDE [Suspect]
     Active Substance: BUDESONIDE
  52. BUDESONIDE [Suspect]
     Active Substance: BUDESONIDE
     Route: 065
  53. ASACOL [Suspect]
     Active Substance: MESALAMINE
     Indication: Colitis ulcerative
     Route: 065
  54. ASACOL [Suspect]
     Active Substance: MESALAMINE
     Route: 065
  55. ASACOL [Suspect]
     Active Substance: MESALAMINE
     Route: 065
  56. ASACOL [Suspect]
     Active Substance: MESALAMINE
     Route: 065
  57. ASACOL [Suspect]
     Active Substance: MESALAMINE
     Route: 065
  58. ASACOL [Suspect]
     Active Substance: MESALAMINE
     Route: 065
  59. ASACOL [Suspect]
     Active Substance: MESALAMINE
     Route: 065
  60. ASACOL [Suspect]
     Active Substance: MESALAMINE
     Route: 065
  61. ASACOL [Suspect]
     Active Substance: MESALAMINE
     Route: 065
  62. ASACOL [Suspect]
     Active Substance: MESALAMINE
     Route: 065
  63. ASACOL [Suspect]
     Active Substance: MESALAMINE
     Route: 065
  64. ASACOL [Suspect]
     Active Substance: MESALAMINE
     Route: 065
  65. ASACOL [Suspect]
     Active Substance: MESALAMINE
     Route: 065
  66. ASACOL [Suspect]
     Active Substance: MESALAMINE
     Route: 065
  67. ASACOL [Suspect]
     Active Substance: MESALAMINE
     Route: 065
  68. ASACOL [Suspect]
     Active Substance: MESALAMINE
     Route: 065
  69. ASACOL [Suspect]
     Active Substance: MESALAMINE
     Route: 065
  70. ASACOL [Suspect]
     Active Substance: MESALAMINE
  71. ASACOL [Suspect]
     Active Substance: MESALAMINE
     Route: 065
  72. ASACOL [Suspect]
     Active Substance: MESALAMINE
     Route: 065
  73. ASACOL [Suspect]
     Active Substance: MESALAMINE
     Route: 065
  74. ASACOL [Suspect]
     Active Substance: MESALAMINE
     Route: 065
  75. ASACOL [Suspect]
     Active Substance: MESALAMINE
     Route: 065
  76. CALCIUM CARBONATE [Concomitant]
     Active Substance: CALCIUM CARBONATE
     Indication: Product used for unknown indication
     Route: 065
  77. SODIUM ALGINATE [Concomitant]
     Active Substance: SODIUM ALGINATE
     Indication: Product used for unknown indication
     Route: 065
  78. SODIUM BICARBONATE [Concomitant]
     Active Substance: SODIUM BICARBONATE
     Indication: Product used for unknown indication
     Route: 065
  79. AZD-1222 [Suspect]
     Active Substance: AZD-1222
     Indication: COVID-19 immunisation
     Route: 065
  80. AZD-1222 [Suspect]
     Active Substance: AZD-1222
     Indication: Adverse drug reaction
     Route: 065
  81. AZD-1222 [Suspect]
     Active Substance: AZD-1222
     Route: 065
  82. AZD-1222 [Suspect]
     Active Substance: AZD-1222
     Route: 065
  83. AZD-1222 [Suspect]
     Active Substance: AZD-1222
     Route: 065
  84. AZD-1222 [Suspect]
     Active Substance: AZD-1222
     Route: 065
  85. AZD-1222 [Suspect]
     Active Substance: AZD-1222
     Route: 065
  86. CITALOPRAM HYDROBROMIDE [Concomitant]
     Active Substance: CITALOPRAM HYDROBROMIDE
     Indication: Ill-defined disorder
     Route: 065
  87. CLOBETASONE BUTYRATE [Concomitant]
     Active Substance: CLOBETASONE BUTYRATE
     Indication: Ill-defined disorder
     Route: 065
  88. COMIRNATY (TOZINAMERAN) [Suspect]
     Active Substance: TOZINAMERAN
     Indication: Product used for unknown indication
     Route: 065
  89. CORTIFOAM [Suspect]
     Active Substance: HYDROCORTISONE ACETATE
     Indication: Deep vein thrombosis
     Route: 065
  90. CORTIFOAM [Suspect]
     Active Substance: HYDROCORTISONE ACETATE
     Indication: Colitis ulcerative
     Route: 065
  91. CORTIFOAM [Suspect]
     Active Substance: HYDROCORTISONE ACETATE
     Route: 065
  92. CORTIFOAM [Suspect]
     Active Substance: HYDROCORTISONE ACETATE
     Route: 065
  93. CORTIFOAM [Suspect]
     Active Substance: HYDROCORTISONE ACETATE
     Route: 065
  94. CORTIFOAM [Suspect]
     Active Substance: HYDROCORTISONE ACETATE
     Route: 065
  95. CORTIFOAM [Suspect]
     Active Substance: HYDROCORTISONE ACETATE
     Route: 065
  96. CORTIFOAM [Suspect]
     Active Substance: HYDROCORTISONE ACETATE
     Route: 065
  97. CORTIFOAM [Suspect]
     Active Substance: HYDROCORTISONE ACETATE
     Route: 065
  98. BUDESONIDE [Suspect]
     Active Substance: BUDESONIDE
     Indication: Colitis ulcerative
  99. BUDESONIDE [Suspect]
     Active Substance: BUDESONIDE
  100. BUDESONIDE [Suspect]
     Active Substance: BUDESONIDE
  101. BUDESONIDE [Suspect]
     Active Substance: BUDESONIDE
  102. BUDESONIDE [Suspect]
     Active Substance: BUDESONIDE
  103. BUDESONIDE [Suspect]
     Active Substance: BUDESONIDE
  104. BUDESONIDE [Suspect]
     Active Substance: BUDESONIDE
  105. BUDESONIDE [Suspect]
     Active Substance: BUDESONIDE
  106. BUDESONIDE [Suspect]
     Active Substance: BUDESONIDE
  107. BUDESONIDE [Suspect]
     Active Substance: BUDESONIDE
  108. BUDESONIDE [Suspect]
     Active Substance: BUDESONIDE
  109. BUDESONIDE [Suspect]
     Active Substance: BUDESONIDE
  110. BUDESONIDE [Suspect]
     Active Substance: BUDESONIDE
  111. BUDESONIDE [Suspect]
     Active Substance: BUDESONIDE
  112. BUDESONIDE [Suspect]
     Active Substance: BUDESONIDE
  113. BUDESONIDE [Suspect]
     Active Substance: BUDESONIDE
  114. BUDESONIDE [Suspect]
     Active Substance: BUDESONIDE
  115. BUDESONIDE [Suspect]
     Active Substance: BUDESONIDE
  116. BUDESONIDE [Suspect]
     Active Substance: BUDESONIDE
  117. BUDESONIDE [Suspect]
     Active Substance: BUDESONIDE
  118. BUDESONIDE [Suspect]
     Active Substance: BUDESONIDE
  119. BUDESONIDE [Suspect]
     Active Substance: BUDESONIDE
  120. BUDESONIDE [Suspect]
     Active Substance: BUDESONIDE
  121. BUDESONIDE [Suspect]
     Active Substance: BUDESONIDE
  122. BUDESONIDE [Suspect]
     Active Substance: BUDESONIDE
  123. BUDESONIDE [Suspect]
     Active Substance: BUDESONIDE
  124. BUDESONIDE [Suspect]
     Active Substance: BUDESONIDE
  125. BUDESONIDE [Suspect]
     Active Substance: BUDESONIDE
  126. CORTISONE [Suspect]
     Active Substance: CORTISONE
     Indication: Crohn^s disease
  127. CORTISONE [Suspect]
     Active Substance: CORTISONE
     Indication: Colitis ulcerative
     Route: 065
  128. CORTISONE [Suspect]
     Active Substance: CORTISONE
     Route: 065
  129. CORTISONE [Suspect]
     Active Substance: CORTISONE
  130. CORTISONE [Suspect]
     Active Substance: CORTISONE
     Route: 065
  131. CORTISONE [Suspect]
     Active Substance: CORTISONE
  132. CORTISONE [Suspect]
     Active Substance: CORTISONE
  133. CORTISONE [Suspect]
     Active Substance: CORTISONE
  134. CORTISONE [Suspect]
     Active Substance: CORTISONE
  135. CORTISONE [Suspect]
     Active Substance: CORTISONE
     Route: 065
  136. CORTISONE [Suspect]
     Active Substance: CORTISONE
  137. CORTISONE [Suspect]
     Active Substance: CORTISONE
     Route: 065
  138. CORTISONE [Suspect]
     Active Substance: CORTISONE
  139. DAPAGLIFLOZIN [Suspect]
     Active Substance: DAPAGLIFLOZIN
     Indication: Ill-defined disorder
     Route: 065
  140. DAPAGLIFLOZIN [Suspect]
     Active Substance: DAPAGLIFLOZIN
     Route: 065
  141. DAPAGLIFLOZIN [Suspect]
     Active Substance: DAPAGLIFLOZIN
     Route: 065
  142. DESOXIMETASONE [Suspect]
     Active Substance: DESOXIMETASONE
     Indication: Crohn^s disease
  143. DESOXIMETASONE [Suspect]
     Active Substance: DESOXIMETASONE
     Indication: Colitis ulcerative
  144. DESOXIMETASONE [Suspect]
     Active Substance: DESOXIMETASONE
  145. DORZOLAMIDE HYDROCHLORIDE [Concomitant]
     Active Substance: DORZOLAMIDE HYDROCHLORIDE
     Indication: Ill-defined disorder
     Route: 065
  146. DORZOLAMIDE HYDROCHLORIDE [Concomitant]
     Active Substance: DORZOLAMIDE HYDROCHLORIDE
     Indication: Product used for unknown indication
     Route: 065
  147. DORZOLAMIDE HYDROCHLORIDE [Concomitant]
     Active Substance: DORZOLAMIDE HYDROCHLORIDE
     Route: 065
  148. DORZOLAMIDE HYDROCHLORIDE [Concomitant]
     Active Substance: DORZOLAMIDE HYDROCHLORIDE
  149. EMPAGLIFLOZIN [Concomitant]
     Active Substance: EMPAGLIFLOZIN
     Indication: Ill-defined disorder
     Route: 065
  150. ENTYVIO [Suspect]
     Active Substance: VEDOLIZUMAB
     Indication: Deep vein thrombosis
     Route: 065
  151. ENTYVIO [Suspect]
     Active Substance: VEDOLIZUMAB
     Indication: Colitis ulcerative
  152. ENTYVIO [Suspect]
     Active Substance: VEDOLIZUMAB
     Route: 065
  153. ENTYVIO [Suspect]
     Active Substance: VEDOLIZUMAB
  154. ENTYVIO [Suspect]
     Active Substance: VEDOLIZUMAB
  155. ENTYVIO [Suspect]
     Active Substance: VEDOLIZUMAB
  156. ENTYVIO [Suspect]
     Active Substance: VEDOLIZUMAB
  157. ENTYVIO [Suspect]
     Active Substance: VEDOLIZUMAB
  158. ENTYVIO [Suspect]
     Active Substance: VEDOLIZUMAB
  159. ENTYVIO [Suspect]
     Active Substance: VEDOLIZUMAB
  160. ENTYVIO [Suspect]
     Active Substance: VEDOLIZUMAB
  161. ENTYVIO [Suspect]
     Active Substance: VEDOLIZUMAB
  162. ENTYVIO [Suspect]
     Active Substance: VEDOLIZUMAB
  163. ENTYVIO [Suspect]
     Active Substance: VEDOLIZUMAB
  164. ENTYVIO [Suspect]
     Active Substance: VEDOLIZUMAB
  165. ENTYVIO [Suspect]
     Active Substance: VEDOLIZUMAB
  166. ENTYVIO [Suspect]
     Active Substance: VEDOLIZUMAB
  167. ENTYVIO [Suspect]
     Active Substance: VEDOLIZUMAB
  168. ENTYVIO [Suspect]
     Active Substance: VEDOLIZUMAB
  169. ENTYVIO [Suspect]
     Active Substance: VEDOLIZUMAB
  170. EPINEPHRINE HYDROCHLORIDE [Suspect]
     Active Substance: EPINEPHRINE HYDROCHLORIDE
     Indication: Product used for unknown indication
     Route: 065
  171. ESCITALOPRAM [Suspect]
     Active Substance: ESCITALOPRAM OXALATE
     Indication: Product used for unknown indication
     Route: 065
  172. FELODIPINE [Suspect]
     Active Substance: FELODIPINE
     Indication: Hypertension
  173. FESOTERODINE FUMARATE [Concomitant]
     Active Substance: FESOTERODINE FUMARATE
     Indication: Product used for unknown indication
     Route: 065
  174. FOLIC ACID [Concomitant]
     Active Substance: FOLIC ACID
     Indication: Product used for unknown indication
     Route: 065
  175. FUROSEMIDE [Suspect]
     Active Substance: FUROSEMIDE
     Indication: Product used for unknown indication
     Route: 065
  176. HUMIRA [Suspect]
     Active Substance: ADALIMUMAB
     Indication: Deep vein thrombosis
  177. HUMIRA [Suspect]
     Active Substance: ADALIMUMAB
     Indication: Crohn^s disease
  178. HUMIRA [Suspect]
     Active Substance: ADALIMUMAB
     Indication: Colitis ulcerative
  179. INFLECTRA [Suspect]
     Active Substance: INFLIXIMAB-DYYB
     Indication: Crohn^s disease
     Route: 065
  180. INFLECTRA [Suspect]
     Active Substance: INFLIXIMAB-DYYB
     Indication: Colitis ulcerative
     Route: 065
  181. INFLECTRA [Suspect]
     Active Substance: INFLIXIMAB-DYYB
  182. INFLECTRA [Suspect]
     Active Substance: INFLIXIMAB-DYYB
  183. INFLECTRA [Suspect]
     Active Substance: INFLIXIMAB-DYYB
     Route: 065
  184. INFLECTRA [Suspect]
     Active Substance: INFLIXIMAB-DYYB
  185. INFLECTRA [Suspect]
     Active Substance: INFLIXIMAB-DYYB
  186. INFLECTRA [Suspect]
     Active Substance: INFLIXIMAB-DYYB
  187. INFLECTRA [Suspect]
     Active Substance: INFLIXIMAB-DYYB
  188. INFLECTRA [Suspect]
     Active Substance: INFLIXIMAB-DYYB
  189. INFLECTRA [Suspect]
     Active Substance: INFLIXIMAB-DYYB
  190. INFLECTRA [Suspect]
     Active Substance: INFLIXIMAB-DYYB
  191. INFLECTRA [Suspect]
     Active Substance: INFLIXIMAB-DYYB
  192. INFLECTRA [Suspect]
     Active Substance: INFLIXIMAB-DYYB
  193. CANDESARTAN [Suspect]
     Active Substance: CANDESARTAN
     Indication: Product used for unknown indication
  194. CANDESARTAN [Suspect]
     Active Substance: CANDESARTAN
  195. CANDESARTAN [Suspect]
     Active Substance: CANDESARTAN
  196. GABAPENTIN [Suspect]
     Active Substance: GABAPENTIN
     Indication: Product used for unknown indication
     Route: 065
  197. GABAPENTIN [Suspect]
     Active Substance: GABAPENTIN
     Route: 065
  198. INFLIXIMAB [Suspect]
     Active Substance: INFLIXIMAB
     Indication: Crohn^s disease
  199. INFLIXIMAB [Suspect]
     Active Substance: INFLIXIMAB
     Indication: Colitis ulcerative
  200. INFLIXIMAB [Suspect]
     Active Substance: INFLIXIMAB
  201. INFLIXIMAB [Suspect]
     Active Substance: INFLIXIMAB
  202. INFLIXIMAB [Suspect]
     Active Substance: INFLIXIMAB
  203. INFLIXIMAB [Suspect]
     Active Substance: INFLIXIMAB
  204. INFLIXIMAB [Suspect]
     Active Substance: INFLIXIMAB
  205. INFLIXIMAB [Suspect]
     Active Substance: INFLIXIMAB
  206. INFLIXIMAB [Suspect]
     Active Substance: INFLIXIMAB
  207. INFLIXIMAB [Suspect]
     Active Substance: INFLIXIMAB
  208. INFLIXIMAB [Suspect]
     Active Substance: INFLIXIMAB
  209. INFLIXIMAB [Suspect]
     Active Substance: INFLIXIMAB
  210. INFLIXIMAB [Suspect]
     Active Substance: INFLIXIMAB
  211. INFLIXIMAB [Suspect]
     Active Substance: INFLIXIMAB
     Route: 065
  212. INFLIXIMAB [Suspect]
     Active Substance: INFLIXIMAB
     Route: 065
  213. INFLIXIMAB [Suspect]
     Active Substance: INFLIXIMAB
  214. INFLIXIMAB [Suspect]
     Active Substance: INFLIXIMAB
  215. INFLIXIMAB [Suspect]
     Active Substance: INFLIXIMAB
  216. INFLIXIMAB [Suspect]
     Active Substance: INFLIXIMAB
  217. INFLIXIMAB [Suspect]
     Active Substance: INFLIXIMAB
     Route: 065
  218. INFLIXIMAB [Suspect]
     Active Substance: INFLIXIMAB
     Route: 065
  219. INFLIXIMAB [Suspect]
     Active Substance: INFLIXIMAB
  220. INFLIXIMAB [Suspect]
     Active Substance: INFLIXIMAB
  221. INFLIXIMAB [Suspect]
     Active Substance: INFLIXIMAB
  222. INFLIXIMAB [Suspect]
     Active Substance: INFLIXIMAB
  223. INFLIXIMAB [Suspect]
     Active Substance: INFLIXIMAB
  224. INFLIXIMAB [Suspect]
     Active Substance: INFLIXIMAB
  225. INFLIXIMAB [Suspect]
     Active Substance: INFLIXIMAB
  226. INFLIXIMAB [Suspect]
     Active Substance: INFLIXIMAB
  227. INFLIXIMAB [Suspect]
     Active Substance: INFLIXIMAB
  228. INFLIXIMAB [Suspect]
     Active Substance: INFLIXIMAB
  229. INFLIXIMAB [Suspect]
     Active Substance: INFLIXIMAB
     Route: 065
  230. INFLIXIMAB [Suspect]
     Active Substance: INFLIXIMAB
     Route: 065
  231. INFLIXIMAB [Suspect]
     Active Substance: INFLIXIMAB
     Route: 065
  232. INFLIXIMAB [Suspect]
     Active Substance: INFLIXIMAB
     Route: 065
  233. INFLIXIMAB [Suspect]
     Active Substance: INFLIXIMAB
     Route: 065
  234. INFLIXIMAB [Suspect]
     Active Substance: INFLIXIMAB
     Route: 065
  235. INFLIXIMAB [Suspect]
     Active Substance: INFLIXIMAB
     Route: 065
  236. INFLIXIMAB [Suspect]
     Active Substance: INFLIXIMAB
     Route: 065
  237. INFLIXIMAB [Suspect]
     Active Substance: INFLIXIMAB
     Route: 065
  238. INFLIXIMAB [Suspect]
     Active Substance: INFLIXIMAB
  239. INFLIXIMAB [Suspect]
     Active Substance: INFLIXIMAB
  240. INFLIXIMAB [Suspect]
     Active Substance: INFLIXIMAB
  241. INFLIXIMAB [Suspect]
     Active Substance: INFLIXIMAB
  242. INFLIXIMAB [Suspect]
     Active Substance: INFLIXIMAB
  243. INFLIXIMAB [Suspect]
     Active Substance: INFLIXIMAB
  244. INFLIXIMAB [Suspect]
     Active Substance: INFLIXIMAB
  245. INFLIXIMAB [Suspect]
     Active Substance: INFLIXIMAB
  246. INFLIXIMAB [Suspect]
     Active Substance: INFLIXIMAB
  247. INFLIXIMAB [Suspect]
     Active Substance: INFLIXIMAB
  248. LANSOPRAZOLE [Concomitant]
     Active Substance: LANSOPRAZOLE
     Indication: Ill-defined disorder
     Route: 065
  249. LATANOPROST [Concomitant]
     Active Substance: LATANOPROST
     Indication: Product used for unknown indication
     Route: 065
  250. LATANOPROST [Concomitant]
     Active Substance: LATANOPROST
     Route: 065
  251. LATANOPROST [Concomitant]
     Active Substance: LATANOPROST
     Route: 065
  252. LATANOPROST [Concomitant]
     Active Substance: LATANOPROST
     Route: 065
  253. LEVOTHYROXINE SODIUM [Suspect]
     Active Substance: LEVOTHYROXINE SODIUM
     Indication: Product used for unknown indication
     Route: 065
  254. LEVOTHYROXINE SODIUM [Suspect]
     Active Substance: LEVOTHYROXINE SODIUM
     Route: 065
  255. LISDEXAMFETAMINE DIMESYLATE [Suspect]
     Active Substance: LISDEXAMFETAMINE DIMESYLATE
     Indication: Product used for unknown indication
     Route: 065
  256. LYRICA [Concomitant]
     Active Substance: PREGABALIN
     Indication: Ill-defined disorder
     Route: 065
  257. POLYETHYLENE GLYCOLS [Concomitant]
     Active Substance: POLYETHYLENE GLYCOLS
     Indication: Product used for unknown indication
     Route: 065
  258. POLYETHYLENE GLYCOLS [Concomitant]
     Active Substance: POLYETHYLENE GLYCOLS
     Indication: Product used for unknown indication
     Route: 065
  259. POLYETHYLENE GLYCOLS [Concomitant]
     Active Substance: POLYETHYLENE GLYCOLS
     Route: 065
  260. POLYETHYLENE GLYCOLS [Concomitant]
     Active Substance: POLYETHYLENE GLYCOLS
     Route: 065
  261. POLYETHYLENE GLYCOLS [Concomitant]
     Active Substance: POLYETHYLENE GLYCOLS
     Route: 065
  262. MEBEVERINE HYDROCHLORIDE [Suspect]
     Active Substance: MEBEVERINE HYDROCHLORIDE
     Indication: Product used for unknown indication
     Route: 065
  263. MEBEVERINE HYDROCHLORIDE [Suspect]
     Active Substance: MEBEVERINE HYDROCHLORIDE
     Route: 065
  264. MESALAMINE [Suspect]
     Active Substance: MESALAMINE
     Indication: Colitis ulcerative
     Route: 065
  265. MESALAMINE [Suspect]
     Active Substance: MESALAMINE
     Route: 065
  266. MESALAMINE [Suspect]
     Active Substance: MESALAMINE
     Route: 065
  267. MESALAMINE [Suspect]
     Active Substance: MESALAMINE
     Route: 065
  268. MESALAMINE [Suspect]
     Active Substance: MESALAMINE
     Route: 065
  269. MESALAMINE [Suspect]
     Active Substance: MESALAMINE
     Route: 065
  270. MESALAMINE [Suspect]
     Active Substance: MESALAMINE
     Route: 065
  271. MESALAMINE [Suspect]
     Active Substance: MESALAMINE
     Route: 065
  272. MESALAMINE [Suspect]
     Active Substance: MESALAMINE
     Route: 065
  273. MESALAMINE [Suspect]
     Active Substance: MESALAMINE
     Route: 065
  274. MESALAMINE [Suspect]
     Active Substance: MESALAMINE
     Route: 065
  275. MESALAMINE [Suspect]
     Active Substance: MESALAMINE
     Route: 065
  276. MESALAMINE [Suspect]
     Active Substance: MESALAMINE
     Route: 065
  277. MESALAMINE [Suspect]
     Active Substance: MESALAMINE
     Route: 065
  278. MESALAMINE [Suspect]
     Active Substance: MESALAMINE
     Route: 065
  279. MESALAMINE [Suspect]
     Active Substance: MESALAMINE
     Route: 065
  280. MESALAMINE [Suspect]
     Active Substance: MESALAMINE
     Route: 065
  281. MESALAMINE [Suspect]
     Active Substance: MESALAMINE
     Route: 065
  282. MESALAMINE [Suspect]
     Active Substance: MESALAMINE
     Route: 065
  283. MESALAMINE [Suspect]
     Active Substance: MESALAMINE
     Route: 065
  284. MESALAMINE [Suspect]
     Active Substance: MESALAMINE
     Route: 065
  285. MESALAMINE [Suspect]
     Active Substance: MESALAMINE
     Route: 065
  286. MESALAMINE [Suspect]
     Active Substance: MESALAMINE
     Route: 065
  287. MESALAMINE [Suspect]
     Active Substance: MESALAMINE
     Route: 065
  288. MESALAMINE [Suspect]
     Active Substance: MESALAMINE
     Route: 065
  289. MESALAMINE [Suspect]
     Active Substance: MESALAMINE
     Route: 065
  290. MESALAMINE [Suspect]
     Active Substance: MESALAMINE
     Route: 065
  291. MESALAMINE [Suspect]
     Active Substance: MESALAMINE
     Route: 065
  292. MESALAMINE [Suspect]
     Active Substance: MESALAMINE
     Route: 065
  293. MESALAMINE [Suspect]
     Active Substance: MESALAMINE
     Route: 065
  294. MESALAMINE [Suspect]
     Active Substance: MESALAMINE
     Route: 065
  295. MESALAMINE [Suspect]
     Active Substance: MESALAMINE
     Route: 065
  296. MESALAMINE [Suspect]
     Active Substance: MESALAMINE
     Route: 065
  297. MESALAMINE [Suspect]
     Active Substance: MESALAMINE
     Route: 065
  298. MESALAMINE [Suspect]
     Active Substance: MESALAMINE
     Route: 065
  299. MESALAMINE [Suspect]
     Active Substance: MESALAMINE
     Route: 065
  300. MESALAMINE [Suspect]
     Active Substance: MESALAMINE
     Route: 065
  301. MESALAMINE [Suspect]
     Active Substance: MESALAMINE
     Route: 065
  302. MESALAMINE [Suspect]
     Active Substance: MESALAMINE
     Route: 065
  303. MESALAMINE [Suspect]
     Active Substance: MESALAMINE
     Route: 065
  304. MESALAMINE [Suspect]
     Active Substance: MESALAMINE
     Route: 065
  305. MESALAMINE [Suspect]
     Active Substance: MESALAMINE
     Route: 065
  306. MESALAMINE [Suspect]
     Active Substance: MESALAMINE
     Route: 065
  307. MESALAMINE [Suspect]
     Active Substance: MESALAMINE
     Route: 065
  308. MESALAMINE [Suspect]
     Active Substance: MESALAMINE
     Route: 065
  309. MESALAMINE [Suspect]
     Active Substance: MESALAMINE
     Route: 065
  310. MESALAMINE [Suspect]
     Active Substance: MESALAMINE
     Route: 065
  311. MESALAMINE [Suspect]
     Active Substance: MESALAMINE
     Route: 065
  312. MESALAMINE [Suspect]
     Active Substance: MESALAMINE
     Route: 065
  313. MESALAMINE [Suspect]
     Active Substance: MESALAMINE
     Route: 065
  314. MESALAMINE [Suspect]
     Active Substance: MESALAMINE
     Indication: Colitis ulcerative
  315. MESALAMINE [Suspect]
     Active Substance: MESALAMINE
  316. MESALAMINE [Suspect]
     Active Substance: MESALAMINE
     Route: 065
  317. MESALAMINE [Suspect]
     Active Substance: MESALAMINE
     Dosage: THERAPY DURATION 10.0 MONTHS
     Route: 065
  318. MESALAMINE [Suspect]
     Active Substance: MESALAMINE
     Route: 065
  319. MESALAMINE [Suspect]
     Active Substance: MESALAMINE
     Dosage: THERAPY DURATION 275.0 DAYS
     Route: 065
  320. MESALAMINE [Suspect]
     Active Substance: MESALAMINE
  321. MESALAMINE [Suspect]
     Active Substance: MESALAMINE
     Dosage: THERAPY DURATION 10.0 MONTHS
     Route: 065
  322. MESALAMINE [Suspect]
     Active Substance: MESALAMINE
  323. MESALAMINE [Suspect]
     Active Substance: MESALAMINE
     Route: 065
  324. MESALAMINE [Suspect]
     Active Substance: MESALAMINE
     Route: 065
  325. MESALAMINE [Suspect]
     Active Substance: MESALAMINE
     Route: 065
  326. MESALAMINE [Suspect]
     Active Substance: MESALAMINE
     Route: 065
  327. MESALAMINE [Suspect]
     Active Substance: MESALAMINE
     Route: 065
  328. MESALAMINE [Suspect]
     Active Substance: MESALAMINE
     Route: 065
  329. MESALAMINE [Suspect]
     Active Substance: MESALAMINE
     Route: 065
  330. MESALAMINE [Suspect]
     Active Substance: MESALAMINE
  331. MESALAMINE [Suspect]
     Active Substance: MESALAMINE
     Route: 065
  332. MESALAMINE [Suspect]
     Active Substance: MESALAMINE
  333. MESALAMINE [Suspect]
     Active Substance: MESALAMINE
     Dosage: THERAPU DURATION 9.0 MONTHS
     Route: 065
  334. MESALAMINE [Suspect]
     Active Substance: MESALAMINE
     Route: 065
  335. MESALAMINE [Suspect]
     Active Substance: MESALAMINE
     Route: 065
  336. MESALAMINE [Suspect]
     Active Substance: MESALAMINE
     Route: 065
  337. MESALAMINE [Suspect]
     Active Substance: MESALAMINE
     Route: 065
  338. MESALAMINE [Suspect]
     Active Substance: MESALAMINE
     Route: 065
  339. MESALAMINE [Suspect]
     Active Substance: MESALAMINE
     Route: 065
  340. MESALAMINE [Suspect]
     Active Substance: MESALAMINE
     Route: 065
  341. METFORMIN [Suspect]
     Active Substance: METFORMIN HYDROCHLORIDE
     Indication: Product used for unknown indication
     Route: 065
  342. METFORMIN [Suspect]
     Active Substance: METFORMIN HYDROCHLORIDE
     Route: 065
  343. METHOTREXATE [Concomitant]
     Active Substance: METHOTREXATE
     Indication: Colitis ulcerative
     Route: 065
  344. METHOTREXATE [Concomitant]
     Active Substance: METHOTREXATE
     Route: 065
  345. METHOTREXATE [Concomitant]
     Active Substance: METHOTREXATE
     Route: 065
  346. METHOTREXATE [Concomitant]
     Active Substance: METHOTREXATE
     Route: 065
  347. MINERAL OIL [Concomitant]
     Active Substance: MINERAL OIL
     Indication: Ill-defined disorder
     Route: 065
  348. NAPHAZOLINE HYDROCHLORIDE [Concomitant]
     Active Substance: NAPHAZOLINE HYDROCHLORIDE
     Indication: Ill-defined disorder
     Route: 065
  349. NITROFURANTOIN [Concomitant]
     Active Substance: NITROFURANTOIN
     Indication: Ill-defined disorder
     Route: 065
  350. OMEPRAZOLE [Suspect]
     Active Substance: OMEPRAZOLE
     Indication: Gastritis
     Route: 065
  351. OXYCODONE [Suspect]
     Active Substance: OXYCODONE
     Indication: Product used for unknown indication
     Route: 065
  352. OXYCODONE HYDROCHLORIDE [Suspect]
     Active Substance: OXYCODONE HYDROCHLORIDE
     Indication: Product used for unknown indication
     Route: 065
  353. OXYCODONE HYDROCHLORIDE [Suspect]
     Active Substance: OXYCODONE HYDROCHLORIDE
     Route: 065
  354. PARA-AMINOSALICYLIC ACID [Suspect]
     Active Substance: AMINOSALICYLIC ACID
     Indication: Product used for unknown indication
  355. PARAFFIN [Concomitant]
     Active Substance: PARAFFIN
     Indication: Product used for unknown indication
     Route: 065
  356. PRAVASTATIN [Concomitant]
     Active Substance: PRAVASTATIN
     Indication: Ill-defined disorder
     Route: 065
  357. PREDNISONE [Suspect]
     Active Substance: PREDNISONE
     Route: 065
  358. PREDNISONE [Suspect]
     Active Substance: PREDNISONE
     Route: 065
  359. PREDNISONE [Suspect]
     Active Substance: PREDNISONE
     Route: 065
  360. PREDNISONE [Suspect]
     Active Substance: PREDNISONE
     Route: 065
  361. PREDNISONE [Suspect]
     Active Substance: PREDNISONE
     Route: 065
  362. PREDNISONE [Suspect]
     Active Substance: PREDNISONE
     Route: 065
  363. PREDNISONE [Suspect]
     Active Substance: PREDNISONE
     Route: 065
  364. PREDNISONE [Suspect]
     Active Substance: PREDNISONE
     Route: 065
  365. PREDNISONE [Suspect]
     Active Substance: PREDNISONE
     Route: 065
  366. PREDNISONE [Suspect]
     Active Substance: PREDNISONE
     Route: 065
  367. CRESTOR [Suspect]
     Active Substance: ROSUVASTATIN CALCIUM
     Route: 065
  368. CRESTOR [Suspect]
     Active Substance: ROSUVASTATIN CALCIUM
     Route: 065
  369. ROSUVASTATIN CALCIUM [Suspect]
     Active Substance: ROSUVASTATIN CALCIUM
     Indication: Ill-defined disorder
     Route: 065
  370. ROSUVASTATIN CALCIUM [Suspect]
     Active Substance: ROSUVASTATIN CALCIUM
     Indication: Blood cholesterol increased
     Route: 065
  371. ROSUVASTATIN CALCIUM [Suspect]
     Active Substance: ROSUVASTATIN CALCIUM
     Route: 065
  372. ROSUVASTATIN CALCIUM [Suspect]
     Active Substance: ROSUVASTATIN CALCIUM
     Route: 065
  373. ROSUVASTATIN CALCIUM [Suspect]
     Active Substance: ROSUVASTATIN CALCIUM
     Route: 065
  374. ROSUVASTATIN CALCIUM [Suspect]
     Active Substance: ROSUVASTATIN CALCIUM
     Route: 065
  375. ROSUVASTATIN CALCIUM [Suspect]
     Active Substance: ROSUVASTATIN CALCIUM
     Route: 065
  376. ROSUVASTATIN CALCIUM [Suspect]
     Active Substance: ROSUVASTATIN CALCIUM
     Route: 065
  377. MESALAMINE [Suspect]
     Active Substance: MESALAMINE
     Indication: Product used for unknown indication
     Route: 065
  378. SULFASALAZINE [Suspect]
     Active Substance: SULFASALAZINE
     Indication: Colitis ulcerative
     Route: 065
  379. SULFASALAZINE [Suspect]
     Active Substance: SULFASALAZINE
     Route: 065
  380. SULFASALAZINE [Suspect]
     Active Substance: SULFASALAZINE
  381. SULFASALAZINE [Suspect]
     Active Substance: SULFASALAZINE
     Route: 065
  382. SULFASALAZINE [Suspect]
     Active Substance: SULFASALAZINE
     Route: 065
  383. SULFASALAZINE [Suspect]
     Active Substance: SULFASALAZINE
  384. SULFASALAZINE [Suspect]
     Active Substance: SULFASALAZINE
     Route: 065
  385. SULFASALAZINE [Suspect]
     Active Substance: SULFASALAZINE
     Route: 065
  386. SULFASALAZINE [Suspect]
     Active Substance: SULFASALAZINE
  387. SULFASALAZINE [Suspect]
     Active Substance: SULFASALAZINE
  388. SULFASALAZINE [Suspect]
     Active Substance: SULFASALAZINE
  389. SULFASALAZINE [Suspect]
     Active Substance: SULFASALAZINE
  390. SULFASALAZINE [Suspect]
     Active Substance: SULFASALAZINE
  391. SULFASALAZINE [Suspect]
     Active Substance: SULFASALAZINE
     Route: 065
  392. SULFASALAZINE [Suspect]
     Active Substance: SULFASALAZINE
     Route: 065
  393. SULFASALAZINE [Suspect]
     Active Substance: SULFASALAZINE
     Route: 065
  394. SULFASALAZINE [Suspect]
     Active Substance: SULFASALAZINE
  395. SULFASALAZINE [Suspect]
     Active Substance: SULFASALAZINE
  396. SULFASALAZINE [Suspect]
     Active Substance: SULFASALAZINE
  397. SULFASALAZINE [Suspect]
     Active Substance: SULFASALAZINE
     Route: 065
  398. TOZINAMERAN [Suspect]
     Active Substance: TOZINAMERAN
     Indication: Product used for unknown indication
     Route: 065
  399. VYVANSE [Suspect]
     Active Substance: LISDEXAMFETAMINE DIMESYLATE
     Indication: Attention deficit hyperactivity disorder
     Route: 065
  400. WARFARIN [Suspect]
     Active Substance: WARFARIN
     Indication: Deep vein thrombosis
  401. WARFARIN [Suspect]
     Active Substance: WARFARIN
     Indication: Colitis ulcerative
  402. WARFARIN [Suspect]
     Active Substance: WARFARIN
  403. WARFARIN [Suspect]
     Active Substance: WARFARIN
  404. WARFARIN [Suspect]
     Active Substance: WARFARIN
  405. WARFARIN [Suspect]
     Active Substance: WARFARIN
  406. WARFARIN [Suspect]
     Active Substance: WARFARIN
  407. WARFARIN [Suspect]
     Active Substance: WARFARIN
  408. WARFARIN [Suspect]
     Active Substance: WARFARIN
  409. WARFARIN [Suspect]
     Active Substance: WARFARIN
  410. WARFARIN [Suspect]
     Active Substance: WARFARIN
  411. WARFARIN [Suspect]
     Active Substance: WARFARIN
  412. WARFARIN [Suspect]
     Active Substance: WARFARIN
  413. WARFARIN [Suspect]
     Active Substance: WARFARIN
  414. WARFARIN [Suspect]
     Active Substance: WARFARIN
  415. WARFARIN [Suspect]
     Active Substance: WARFARIN
  416. WARFARIN [Suspect]
     Active Substance: WARFARIN
  417. WARFARIN [Suspect]
     Active Substance: WARFARIN
  418. WARFARIN [Suspect]
     Active Substance: WARFARIN
  419. WARFARIN [Suspect]
     Active Substance: WARFARIN
  420. WARFARIN SODIUM [Suspect]
     Active Substance: WARFARIN SODIUM
     Indication: Deep vein thrombosis
  421. WARFARIN SODIUM [Suspect]
     Active Substance: WARFARIN SODIUM
     Indication: Colitis ulcerative
  422. WARFARIN SODIUM [Suspect]
     Active Substance: WARFARIN SODIUM
  423. WARFARIN SODIUM [Suspect]
     Active Substance: WARFARIN SODIUM
  424. WARFARIN SODIUM [Suspect]
     Active Substance: WARFARIN SODIUM
  425. WARFARIN SODIUM [Suspect]
     Active Substance: WARFARIN SODIUM
  426. WARFARIN SODIUM [Suspect]
     Active Substance: WARFARIN SODIUM
  427. WARFARIN SODIUM [Suspect]
     Active Substance: WARFARIN SODIUM
  428. WARFARIN SODIUM [Suspect]
     Active Substance: WARFARIN SODIUM
  429. WARFARIN SODIUM [Suspect]
     Active Substance: WARFARIN SODIUM
  430. WARFARIN SODIUM [Suspect]
     Active Substance: WARFARIN SODIUM
  431. WARFARIN SODIUM [Suspect]
     Active Substance: WARFARIN SODIUM
  432. WARFARIN SODIUM [Suspect]
     Active Substance: WARFARIN SODIUM
  433. WARFARIN SODIUM [Suspect]
     Active Substance: WARFARIN SODIUM
  434. WARFARIN SODIUM [Suspect]
     Active Substance: WARFARIN SODIUM
  435. WARFARIN SODIUM [Suspect]
     Active Substance: WARFARIN SODIUM
     Route: 065
  436. WARFARIN SODIUM [Suspect]
     Active Substance: WARFARIN SODIUM
     Route: 065
  437. WARFARIN SODIUM [Suspect]
     Active Substance: WARFARIN SODIUM
  438. WARFARIN SODIUM [Suspect]
     Active Substance: WARFARIN SODIUM
  439. WARFARIN SODIUM [Suspect]
     Active Substance: WARFARIN SODIUM
  440. WARFARIN SODIUM [Suspect]
     Active Substance: WARFARIN SODIUM
     Route: 065
  441. WARFARIN SODIUM [Suspect]
     Active Substance: WARFARIN SODIUM
  442. WARFARIN SODIUM [Suspect]
     Active Substance: WARFARIN SODIUM
  443. WARFARIN SODIUM [Suspect]
     Active Substance: WARFARIN SODIUM
  444. WARFARIN SODIUM [Suspect]
     Active Substance: WARFARIN SODIUM
  445. WARFARIN SODIUM [Suspect]
     Active Substance: WARFARIN SODIUM
  446. WARFARIN SODIUM [Suspect]
     Active Substance: WARFARIN SODIUM
  447. WARFARIN SODIUM [Suspect]
     Active Substance: WARFARIN SODIUM
  448. WARFARIN SODIUM [Suspect]
     Active Substance: WARFARIN SODIUM
  449. WARFARIN SODIUM [Suspect]
     Active Substance: WARFARIN SODIUM
  450. WARFARIN SODIUM [Suspect]
     Active Substance: WARFARIN SODIUM
  451. WARFARIN SODIUM [Suspect]
     Active Substance: WARFARIN SODIUM
  452. RAMIPRIL [Concomitant]
     Active Substance: RAMIPRIL
     Indication: Ill-defined disorder
     Route: 065

REACTIONS (53)
  - Bronchiectasis [Not Recovered/Not Resolved]
  - Confusional state [Not Recovered/Not Resolved]
  - Deep vein thrombosis [Not Recovered/Not Resolved]
  - Depression [Not Recovered/Not Resolved]
  - Drug ineffective [Not Recovered/Not Resolved]
  - Dysgeusia [Not Recovered/Not Resolved]
  - Eczema [Not Recovered/Not Resolved]
  - Fatigue [Not Recovered/Not Resolved]
  - Frequent bowel movements [Not Recovered/Not Resolved]
  - Gingival pain [Not Recovered/Not Resolved]
  - Haematochezia [Not Recovered/Not Resolved]
  - Headache [Not Recovered/Not Resolved]
  - Hypopnoea [Not Recovered/Not Resolved]
  - Impaired quality of life [Not Recovered/Not Resolved]
  - Impaired work ability [Not Recovered/Not Resolved]
  - Inappropriate schedule of product administration [Not Recovered/Not Resolved]
  - Intentional product use issue [Not Recovered/Not Resolved]
  - Loss of personal independence in daily activities [Not Recovered/Not Resolved]
  - Medication error [Not Recovered/Not Resolved]
  - Migraine [Not Recovered/Not Resolved]
  - Nightmare [Not Recovered/Not Resolved]
  - Off label use [Not Recovered/Not Resolved]
  - Pain [Not Recovered/Not Resolved]
  - Pain in extremity [Not Recovered/Not Resolved]
  - Palpitations [Not Recovered/Not Resolved]
  - Parosmia [Not Recovered/Not Resolved]
  - Product use in unapproved indication [Not Recovered/Not Resolved]
  - Pulmonary embolism [Not Recovered/Not Resolved]
  - Pyrexia [Not Recovered/Not Resolved]
  - Rash [Not Recovered/Not Resolved]
  - Rectal haemorrhage [Not Recovered/Not Resolved]
  - Rhinitis [Not Recovered/Not Resolved]
  - Somnolence [Not Recovered/Not Resolved]
  - Steroid dependence [Not Recovered/Not Resolved]
  - Stress [Not Recovered/Not Resolved]
  - Swollen tongue [Not Recovered/Not Resolved]
  - Systemic lupus erythematosus [Not Recovered/Not Resolved]
  - Tinnitus [Not Recovered/Not Resolved]
  - Tubulointerstitial nephritis [Not Recovered/Not Resolved]
  - Vertigo [Not Recovered/Not Resolved]
  - Weight decreased [Not Recovered/Not Resolved]
  - Abdominal discomfort [Not Recovered/Not Resolved]
  - Accidental overdose [Not Recovered/Not Resolved]
  - Adverse drug reaction [Not Recovered/Not Resolved]
  - Alcohol poisoning [Not Recovered/Not Resolved]
  - Arthritis [Not Recovered/Not Resolved]
  - Burns second degree [Not Recovered/Not Resolved]
  - COVID-19 [Not Recovered/Not Resolved]
  - Cardiac murmur [Not Recovered/Not Resolved]
  - Catarrh [Not Recovered/Not Resolved]
  - Cerebrovascular accident [Not Recovered/Not Resolved]
  - Colitis ulcerative [Not Recovered/Not Resolved]
  - Condition aggravated [Not Recovered/Not Resolved]
